FAERS Safety Report 8720573 (Version 3)
Quarter: 2012Q4

REPORT INFORMATION
  Report Type: 
  Country: US (occurrence: US)
  Receive Date: 20120813
  Receipt Date: 20120828
  Transmission Date: 20130627
  Serious: Yes (Other)
  Sender: FDA-Public Use
  Company Number: US-AMGEN-USASP2012049599

PATIENT
  Age: 82 Year
  Sex: Female
  Weight: 41.36 kg

DRUGS (21)
  1. NPLATE [Suspect]
     Indication: IDIOPATHIC THROMBOCYTOPENIC PURPURA
     Dosage: 4 mug/kg, qwk
     Route: 058
     Dates: start: 20111115
  2. NPLATE [Suspect]
     Dosage: 168 mug, qwk
     Route: 058
     Dates: end: 20120807
  3. IMDUR [Concomitant]
  4. CAPOTEN [Concomitant]
  5. LIPITOR [Concomitant]
  6. NEXIUM                             /01479302/ [Concomitant]
  7. BONIVA [Concomitant]
  8. VITAMIN D /00107901/ [Concomitant]
  9. ASPIRIN [Concomitant]
  10. OS-CAL [Concomitant]
  11. MAGNESIUM OXIDE [Concomitant]
  12. METOPROLOL [Concomitant]
  13. RITUXAN [Concomitant]
     Indication: IDIOPATHIC THROMBOCYTOPENIC PURPURA
     Dosage: UNK
     Dates: start: 20111018
  14. RITUXAN [Concomitant]
     Dosage: UNK
     Dates: start: 20120809
  15. RITUXAN [Concomitant]
     Dosage: UNK
     Dates: start: 20111101
  16. RITUXAN [Concomitant]
     Dosage: UNK
     Dates: start: 20111108
  17. RITUXAN [Concomitant]
     Dosage: UNK
     Dates: start: 20120809
  18. IVIGLOB EX [Concomitant]
     Indication: IDIOPATHIC THROMBOCYTOPENIC PURPURA
     Dosage: UNK
     Dates: start: 20110215
  19. IVIGLOB EX [Concomitant]
     Indication: THERAPEUTIC RESPONSE DECREASED
     Dosage: UNK
     Dates: start: 20120807
  20. IVIGLOB EX [Concomitant]
     Dosage: UNK
     Dates: start: 20120807
  21. IVIGLOB EX [Concomitant]
     Dosage: UNK
     Dates: start: 20120808

REACTIONS (2)
  - Therapeutic response decreased [Not Recovered/Not Resolved]
  - Thrombocytopenia [Not Recovered/Not Resolved]
